FAERS Safety Report 16889529 (Version 1)
Quarter: 2019Q4

REPORT INFORMATION
  Report Type: Spontaneous
  Country: US (occurrence: US)
  Receive Date: 20191007
  Receipt Date: 20191007
  Transmission Date: 20200122
  Serious: Yes (Death, Other)
  Sender: FDA-Public Use
  Company Number: US-SA-2019SA273534

PATIENT

DRUGS (2)
  1. LEMTRADA [Suspect]
     Active Substance: ALEMTUZUMAB
     Indication: MULTIPLE SCLEROSIS
     Dosage: UNK UNK, UNK
     Route: 041
  2. LEMTRADA [Suspect]
     Active Substance: ALEMTUZUMAB
     Dosage: UNK UNK, UNK
     Route: 041

REACTIONS (7)
  - Immune thrombocytopenic purpura [Recovered/Resolved]
  - Increased tendency to bruise [Unknown]
  - Platelet count decreased [Recovered/Resolved]
  - Platelet count increased [Unknown]
  - Haemorrhage [Fatal]
  - Gingival bleeding [Unknown]
  - Headache [Unknown]
